FAERS Safety Report 15339315 (Version 6)
Quarter: 2018Q4

REPORT INFORMATION
  Report Type: Spontaneous
  Country: CA (occurrence: CA)
  Receive Date: 20180831
  Receipt Date: 20181026
  Transmission Date: 20190204
  Serious: Yes (Other)
  Sender: FDA-Public Use
  Company Number: CA-PFIZER INC-2018347743

PATIENT
  Age: 28 Year
  Sex: Male

DRUGS (9)
  1. FOLIC ACID. [Concomitant]
     Active Substance: FOLIC ACID
     Dosage: 1 MG, DAILY (EXCEPT ON  DAY OF METHOTREXATE)
     Route: 048
  2. MARIJUANA [Concomitant]
     Active Substance: CANNABIS SATIVA SUBSP. INDICA TOP
     Dosage: UNK
  3. PREDNISONE. [Concomitant]
     Active Substance: PREDNISONE
     Dosage: 40 MG, FOR TWO WEEKS THEN WEAN 5 MG WEEKLY
     Dates: start: 20180824
  4. PANTOLOC [PANTOPRAZOLE] [Concomitant]
     Dosage: 40 MG, DAILY
     Route: 048
  5. GELSEMIUM [Concomitant]
     Active Substance: GELSEMIUM SEMPERVIRENS ROOT
     Dosage: UNK
     Route: 060
  6. IRON [FERROUS CITRATE] [Concomitant]
     Dosage: UNK
  7. METHOTREXATE SODIUM. [Suspect]
     Active Substance: METHOTREXATE SODIUM
     Dosage: 5 DF, WEEKLY (5 TABLETS ONCE WEEKLY )
     Route: 048
     Dates: start: 201806
  8. VALPROIC ACID. [Concomitant]
     Active Substance: VALPROIC ACID
     Dosage: 500 MG, 2X/DAY
     Route: 048
  9. PREDNISONE. [Concomitant]
     Active Substance: PREDNISONE
     Dosage: 5MG WEEKLY
     Dates: start: 2018

REACTIONS (5)
  - Drug ineffective [Not Recovered/Not Resolved]
  - Colitis [Not Recovered/Not Resolved]
  - Malaise [Not Recovered/Not Resolved]
  - Rectal haemorrhage [Recovered/Resolved]
  - Condition aggravated [Not Recovered/Not Resolved]

NARRATIVE: CASE EVENT DATE: 2018
